FAERS Safety Report 7797550-7 (Version None)
Quarter: 2011Q4

REPORT INFORMATION
  Report Type: 
  Country: None (occurrence: None)
  Receive Date: 20111004
  Receipt Date: 20111004
  Transmission Date: 20120403
  Serious: Yes (Death)
  Sender: FDA-Public Use
  Company Number: None

PATIENT
  Age: 62 Year
  Sex: Male

DRUGS (7)
  1. TAMSULOSIN HCL [Concomitant]
  2. PROAIR HFA [Concomitant]
  3. LORAZEPAM [Concomitant]
  4. REVLIMID [Suspect]
     Indication: AMYLOIDOSIS
     Dosage: REVLIMID 10 MG 3X/WK X21D/28D ORALLY
     Route: 048
     Dates: start: 20100901, end: 20110301
  5. REVLIMID [Suspect]
     Indication: AMYLOIDOSIS
     Dosage: REVLIMID 10 MG 3X/WK X21D/28D ORALLY
     Route: 048
     Dates: start: 20110801
  6. FLUOZETINE [Concomitant]
  7. GABAPENTIN [Concomitant]

REACTIONS (10)
  - PNEUMONIA [None]
  - HYPOXIA [None]
  - NAUSEA [None]
  - DIARRHOEA [None]
  - ASTHENIA [None]
  - VOMITING [None]
  - ORTHOSTATIC HYPOTENSION [None]
  - HYPERKALAEMIA [None]
  - GENERAL PHYSICAL HEALTH DETERIORATION [None]
  - RHYTHM IDIOVENTRICULAR [None]
